FAERS Safety Report 24070686 (Version 1)
Quarter: 2024Q3

REPORT INFORMATION
  Report Type: Spontaneous
  Country: US (occurrence: None)
  Receive Date: 20240709
  Receipt Date: 20240709
  Transmission Date: 20241017
  Serious: Yes (Hospitalization)
  Sender: Public
  Company Number: None

PATIENT
  Age: 59 Year
  Sex: Male
  Weight: 106 kg

DRUGS (2)
  1. FLUDARABINE [Suspect]
     Active Substance: FLUDARABINE PHOSPHATE
  2. CYCLOPHOSPHAMIDE [Suspect]
     Active Substance: CYCLOPHOSPHAMIDE

REACTIONS (6)
  - Lymphocyte adoptive therapy [None]
  - Inappropriate schedule of product administration [None]
  - Pyrexia [None]
  - Staphylococcus test positive [None]
  - False positive investigation result [None]
  - Blood culture negative [None]

NARRATIVE: CASE EVENT DATE: 20240630
